FAERS Safety Report 9887747 (Version 1)
Quarter: 2014Q1

REPORT INFORMATION
  Report Type: Spontaneous
  Country: FR (occurrence: FR)
  Receive Date: 20140211
  Receipt Date: 20140211
  Transmission Date: 20141002
  Serious: Yes (Hospitalization)
  Sender: FDA-Public Use
  Company Number: FR-ROCHE-1346313

PATIENT
  Age: 58 Year
  Sex: Female

DRUGS (17)
  1. ROVALCYTE [Suspect]
     Indication: CYTOMEGALOVIRUS INFECTION
     Route: 048
     Dates: start: 2004, end: 200409
  2. ROVALCYTE [Suspect]
     Dosage: DOSE REDUCED.
     Route: 048
     Dates: start: 20040809
  3. ROVALCYTE [Suspect]
     Dosage: DOSE INCREASED
     Route: 048
     Dates: start: 20040901, end: 20040906
  4. CELLCEPT [Suspect]
     Indication: HEART TRANSPLANT
     Route: 048
     Dates: start: 200405
  5. CELLCEPT [Suspect]
     Route: 048
     Dates: start: 20040812
  6. BACTRIM [Suspect]
     Route: 065
     Dates: end: 20040901
  7. BACTRIM [Suspect]
     Route: 065
     Dates: end: 20040920
  8. NEORAL [Suspect]
     Indication: HEART TRANSPLANT
     Route: 048
     Dates: start: 200405
  9. NEORAL [Suspect]
     Dosage: 50 MG IN MORNING AND 75 MG IN EVENING.
     Route: 048
     Dates: start: 20040913
  10. ZELITREX [Suspect]
     Indication: CYTOMEGALOVIRUS INFECTION
     Route: 048
     Dates: start: 20040906, end: 20040909
  11. CLAMOXYL (FRANCE) [Suspect]
     Indication: PRODUCT USED FOR UNKNOWN INDICATION
     Route: 048
     Dates: end: 20040909
  12. INEXIUM [Suspect]
     Indication: PRODUCT USED FOR UNKNOWN INDICATION
     Route: 048
     Dates: end: 20040906
  13. LEXOMIL [Concomitant]
     Route: 065
  14. SOLUPRED (FRANCE) [Concomitant]
  15. LEVOTHYROX [Concomitant]
  16. CACIT VITAMINE D3 [Concomitant]
  17. PREVISCAN (FRANCE) [Concomitant]
     Route: 065
     Dates: end: 20040909

REACTIONS (2)
  - Agranulocytosis [Recovered/Resolved]
  - Neutropenia [Recovered/Resolved]
